FAERS Safety Report 5808523-5 (Version None)
Quarter: 2008Q3

REPORT INFORMATION
  Report Type: 
  Country: None (occurrence: None)
  Receive Date: 20080702
  Receipt Date: 20080417
  Transmission Date: 20090109
  Serious: Yes (Other)
  Sender: FDA-Public Use
  Company Number: US-WYE-H03661308

PATIENT
  Sex: Male

DRUGS (6)
  1. ADVIL [Suspect]
     Indication: PAIN
     Dosage: 2 TABLETS AS NEEDED, ORAL
     Route: 048
     Dates: start: 20040101
  2. VASOTEC [Concomitant]
  3. ASPIRIN [Concomitant]
  4. AMOXICILLIN [Concomitant]
  5. METOPROLOL TARTRATE [Concomitant]
  6. ZOCOR [Concomitant]

REACTIONS (2)
  - DYSPHAGIA [None]
  - OROPHARYNGEAL PAIN [None]
